FAERS Safety Report 23315599 (Version 1)
Quarter: 2023Q4

REPORT INFORMATION
  Report Type: Spontaneous
  Country: US (occurrence: US)
  Receive Date: 20231219
  Receipt Date: 20231219
  Transmission Date: 20240110
  Serious: No
  Sender: FDA-Public Use
  Company Number: US-BRISTOL-MYERS SQUIBB COMPANY-2023-181658

PATIENT
  Age: 36 Year
  Sex: Female

DRUGS (3)
  1. ORENCIA [Suspect]
     Active Substance: ABATACEPT
     Indication: Psoriatic arthropathy
     Route: 058
     Dates: start: 202310
  2. ORENCIA [Suspect]
     Active Substance: ABATACEPT
     Indication: Psoriasis
  3. ORENCIA [Suspect]
     Active Substance: ABATACEPT
     Indication: Psoriasis

REACTIONS (8)
  - Blood potassium decreased [Unknown]
  - Fatigue [Unknown]
  - Migraine [Unknown]
  - Dizziness [Unknown]
  - White blood cell count increased [Unknown]
  - Hypotension [Unknown]
  - Dyspnoea [Unknown]
  - Speech disorder [Unknown]
